FAERS Safety Report 12720109 (Version 4)
Quarter: 2017Q2

REPORT INFORMATION
  Report Type: Spontaneous
  Country: US (occurrence: US)
  Receive Date: 20160907
  Receipt Date: 20170620
  Transmission Date: 20170830
  Serious: Yes (Other)
  Sender: FDA-Public Use
  Company Number: US-PFIZER INC-2016410862

PATIENT
  Age: 48 Year
  Sex: Female

DRUGS (7)
  1. IBRANCE [Suspect]
     Active Substance: PALBOCICLIB
     Dosage: 75 MG, CYCLIC (DAILY FOR 21 DAYS ON THEN 7 DAYS OFF, TAKE WITH FOOD)
     Route: 048
  2. XGEVA [Concomitant]
     Active Substance: DENOSUMAB
     Dosage: UNK
  3. FASLODEX [Concomitant]
     Active Substance: FULVESTRANT
     Dosage: UNK
  4. DIOVAN [Concomitant]
     Active Substance: VALSARTAN
     Dosage: UNK
  5. IBRANCE [Suspect]
     Active Substance: PALBOCICLIB
     Indication: BREAST CANCER FEMALE
     Dosage: 125 MG, CYCLIC (DAILY ON DAYS 1-21 EVERY 28 DAYS, TAKE WITH FOOD)
     Route: 048
  6. SIMVASTATIN. [Concomitant]
     Active Substance: SIMVASTATIN
     Dosage: UNK
  7. NOVOLOG [Concomitant]
     Active Substance: INSULIN ASPART
     Dosage: UNK

REACTIONS (5)
  - Neutropenia [Unknown]
  - Joint stiffness [Unknown]
  - Blood test abnormal [Unknown]
  - Neoplasm progression [Unknown]
  - Musculoskeletal stiffness [Unknown]
